FAERS Safety Report 13779746 (Version 1)
Quarter: 2017Q3

REPORT INFORMATION
  Report Type: Spontaneous
  Country: IT (occurrence: IT)
  Receive Date: 20170722
  Receipt Date: 20170722
  Transmission Date: 20171127
  Serious: Yes (Hospitalization, Other)
  Sender: FDA-Public Use
  Company Number: IT-MYLANLABS-2017M1042357

PATIENT

DRUGS (5)
  1. THIOCOLCHICOSIDE [Suspect]
     Active Substance: THIOCOLCHICOSIDE
     Indication: INFLAMMATION
     Dosage: 4 MG DAILY
     Route: 030
  2. NIMESULIDE [Suspect]
     Active Substance: NIMESULIDE
     Indication: INFLAMMATION
     Dosage: 400 MG DAILY
     Route: 030
  3. BETAMETHASONE. [Suspect]
     Active Substance: BETAMETHASONE
     Indication: PRODUCT USED FOR UNKNOWN INDICATION
     Dosage: 4 MG, UNK
     Route: 030
  4. DICLOFENAC [Suspect]
     Active Substance: DICLOFENAC
     Indication: INFLAMMATION
     Dosage: 75 MG DAILY
     Route: 030
  5. KETOROLAC [Suspect]
     Active Substance: KETOROLAC\KETOROLAC TROMETHAMINE
     Indication: INFLAMMATION
     Dosage: 30 MG DAILY
     Route: 030

REACTIONS (6)
  - Rectal haemorrhage [Recovered/Resolved]
  - Erosive duodenitis [Recovered/Resolved]
  - Incorrect drug administration duration [Recovered/Resolved]
  - Overdose [Unknown]
  - Gastritis erosive [Recovered/Resolved]
  - Melaena [Recovered/Resolved]
